FAERS Safety Report 13500499 (Version 1)
Quarter: 2017Q2

REPORT INFORMATION
  Report Type: Spontaneous
  Country: US (occurrence: US)
  Receive Date: 20170501
  Receipt Date: 20170501
  Transmission Date: 20170830
  Serious: No
  Sender: FDA-Public Use
  Company Number: US-AKRIMAX-TIR-2017-0318

PATIENT
  Sex: Female
  Weight: 60.84 kg

DRUGS (6)
  1. TIROSINT [Suspect]
     Active Substance: LEVOTHYROXINE SODIUM
     Dosage: 25MCG EVERY OTHER DAY
     Route: 048
  2. TIROSINT [Suspect]
     Active Substance: LEVOTHYROXINE SODIUM
     Dosage: 25MCG DAILY ON MONDAY, WEDNESDAY, AND FRIDAY
     Route: 048
  3. NADOLOL. [Concomitant]
     Active Substance: NADOLOL
     Indication: PRODUCT USED FOR UNKNOWN INDICATION
  4. ALENDRONATE [Concomitant]
     Active Substance: ALENDRONATE SODIUM
     Indication: PRODUCT USED FOR UNKNOWN INDICATION
  5. CRESTOR [Concomitant]
     Active Substance: ROSUVASTATIN CALCIUM
     Indication: PRODUCT USED FOR UNKNOWN INDICATION
  6. TIROSINT [Suspect]
     Active Substance: LEVOTHYROXINE SODIUM
     Indication: HYPOTHYROIDISM
     Dosage: 25MCG DAILY
     Route: 048
     Dates: start: 2016

REACTIONS (6)
  - Cardiovascular symptom [Unknown]
  - Dyspnoea [Unknown]
  - Feeling jittery [Unknown]
  - Psychomotor hyperactivity [Unknown]
  - Nervousness [Unknown]
  - Feeling abnormal [Unknown]
